FAERS Safety Report 8959542 (Version 1)
Quarter: 2012Q4

REPORT INFORMATION
  Report Type: 
  Country: US (occurrence: US)
  Receive Date: 20121212
  Receipt Date: 20121212
  Transmission Date: 20130627
  Serious: Yes (Hospitalization)
  Sender: FDA-Public Use
  Company Number: US-009507513-1212USA002559

PATIENT
  Age: 41 None
  Sex: Female

DRUGS (3)
  1. TEMODAR [Suspect]
     Indication: GLIOBLASTOMA
     Dosage: UNK
     Route: 042
     Dates: start: 201202, end: 201209
  2. DEXAMETHASONE [Concomitant]
     Dosage: 10 mg, qd
  3. KEPPRA [Concomitant]
     Dosage: 750 mg, qd

REACTIONS (4)
  - Wound dehiscence [Unknown]
  - Brain neoplasm [Unknown]
  - Thrombocytopenia [Unknown]
  - Neutropenia [Unknown]
